FAERS Safety Report 7305439-2 (Version None)
Quarter: 2011Q1

REPORT INFORMATION
  Report Type: 
  Country: None (occurrence: None)
  Receive Date: 20110222
  Receipt Date: 20110218
  Transmission Date: 20110831
  Serious: Yes (Other)
  Sender: FDA-Public Use
  Company Number: JP-PFIZER INC-2011036983

PATIENT
  Age: 71 Year
  Sex: Female

DRUGS (1)
  1. NORVASC [Suspect]
     Dosage: 5 MG, DAILY
     Route: 048
     Dates: start: 20100201

REACTIONS (1)
  - COGNITIVE DISORDER [None]
